FAERS Safety Report 9442469 (Version 1)
Quarter: 2013Q3

REPORT INFORMATION
  Report Type: Spontaneous
  Country: US (occurrence: US)
  Receive Date: 20130806
  Receipt Date: 20130806
  Transmission Date: 20140515
  Serious: Yes (Death, Hospitalization, Other)
  Sender: FDA-Public Use
  Company Number: US-PFIZER INC-2013227483

PATIENT
  Age: 55 Year
  Sex: Male

DRUGS (3)
  1. RAPAMUNE [Suspect]
     Indication: IMMUNOSUPPRESSANT DRUG THERAPY
     Dosage: 1 MG, 1X/DAY
     Route: 048
     Dates: start: 20071009, end: 20100416
  2. RAPAMUNE [Suspect]
     Indication: BLOOD CREATININE INCREASED
  3. PROGRAF [Concomitant]
     Dosage: 1 MG, 2X/DAY

REACTIONS (6)
  - Interstitial lung disease [Fatal]
  - Pulmonary fibrosis [Fatal]
  - Respiratory distress [Unknown]
  - Upper respiratory tract infection [Unknown]
  - Blood triglycerides increased [Unknown]
  - Blood creatinine increased [Unknown]
